FAERS Safety Report 8824056 (Version 1)
Quarter: 2012Q4

REPORT INFORMATION
  Report Type: 
  Country: HU (occurrence: HU)
  Receive Date: 20121004
  Receipt Date: 20121004
  Transmission Date: 20130627
  Serious: Yes (Other)
  Sender: FDA-Public Use
  Company Number: HU-UCBSA-067935

PATIENT
  Age: 53 Year
  Sex: Female

DRUGS (3)
  1. CIMZIA [Suspect]
     Indication: RHEUMATOID ARTHRITIS
     Route: 058
     Dates: start: 20120801
  2. RAWEL [Concomitant]
     Indication: HYPERTENSION
     Route: 048
     Dates: start: 2008
  3. PORTIRON [Concomitant]
     Indication: HYPERTENSION
     Route: 048
     Dates: start: 2008

REACTIONS (2)
  - Alopecia [Recovering/Resolving]
  - Eyelid ptosis [Recovering/Resolving]
